FAERS Safety Report 7456399-5 (Version None)
Quarter: 2011Q2

REPORT INFORMATION
  Report Type: 
  Country: None (occurrence: None)
  Receive Date: 20110426
  Receipt Date: 20110414
  Transmission Date: 20111010
  Serious: Yes (Hospitalization)
  Sender: FDA-Public Use
  Company Number: JP-2011-10568

PATIENT
  Age: 49 Year
  Sex: Male
  Weight: 76.7 kg

DRUGS (7)
  1. SAMSCA [Suspect]
     Indication: CARDIAC FAILURE
     Dosage: 7.5 MG MILLIGRAM(S), QD, ORAL
     Route: 048
     Dates: start: 20110325, end: 20110329
  2. LASIX [Suspect]
     Indication: CARDIAC FAILURE
     Dosage: 40 MG MILLIGRAM(S), QD, ORAL
     Route: 048
  3. BLOPRESS (CANDESARTAN CILEXETIL) [Concomitant]
  4. ALLOPURINOL [Concomitant]
  5. GLACTIV (SITAGLIPTIN PHOSPHATE HYDRATE) [Concomitant]
  6. ALDACTONE [Concomitant]
  7. ARTIST (CARVEDILOL) [Concomitant]

REACTIONS (1)
  - CEREBRAL INFARCTION [None]
